FAERS Safety Report 20134413 (Version 11)
Quarter: 2023Q1

REPORT INFORMATION
  Report Type: Spontaneous
  Country: PT (occurrence: PT)
  Receive Date: 20211201
  Receipt Date: 20230222
  Transmission Date: 20230418
  Serious: Yes (Hospitalization, Other)
  Sender: FDA-Public Use
  Company Number: PT-NOVARTISPH-NVSC2021PT272481

PATIENT
  Age: 86 Year
  Sex: Female

DRUGS (4)
  1. AMOXICILLIN\CLAVULANATE POTASSIUM [Suspect]
     Active Substance: AMOXICILLIN\CLAVULANATE POTASSIUM
     Indication: Cystitis klebsiella
     Dosage: UNK
     Route: 065
  2. AMOXICILLIN\CLAVULANATE POTASSIUM [Suspect]
     Active Substance: AMOXICILLIN\CLAVULANATE POTASSIUM
     Indication: COVID-19 pneumonia
  3. DEXAMETHASONE [Concomitant]
     Active Substance: DEXAMETHASONE
     Indication: COVID-19 pneumonia
     Dosage: UNK
     Route: 065
  4. DEXAMETHASONE [Concomitant]
     Active Substance: DEXAMETHASONE
     Indication: Cystitis klebsiella

REACTIONS (3)
  - Symmetrical drug-related intertriginous and flexural exanthema [Recovered/Resolved]
  - Toxic skin eruption [Recovered/Resolved]
  - Rash erythematous [Recovered/Resolved]
